FAERS Safety Report 25106644 (Version 4)
Quarter: 2025Q2

REPORT INFORMATION
  Report Type: Report from Study
  Country: US (occurrence: US)
  Receive Date: 20250321
  Receipt Date: 20250613
  Transmission Date: 20250716
  Serious: Yes (Other)
  Sender: ALEXION PHARMACEUTICALS
  Company Number: US-AstraZeneca-CH-00822997A

PATIENT

DRUGS (1)
  1. STRENSIQ [Suspect]
     Active Substance: ASFOTASE ALFA
     Indication: Hypophosphatasia
     Dosage: UNK, TIW

REACTIONS (3)
  - Autoimmune disorder [Unknown]
  - Pituitary-dependent Cushing^s syndrome [Not Recovered/Not Resolved]
  - Insurance issue [Unknown]
